FAERS Safety Report 8160021-2 (Version None)
Quarter: 2012Q1

REPORT INFORMATION
  Report Type: 
  Country: None (occurrence: None)
  Receive Date: 20120223
  Receipt Date: 20120208
  Transmission Date: 20120608
  Serious: Yes (Disabling)
  Sender: FDA-Public Use
  Company Number: AU-GLAXOSMITHKLINE-B0780475A

PATIENT
  Sex: Female
  Weight: 49 kg

DRUGS (1)
  1. PAROXETINE HCL [Suspect]
     Indication: PRODUCT USED FOR UNKNOWN INDICATION
     Route: 065

REACTIONS (8)
  - NAUSEA [None]
  - RASH [None]
  - WITHDRAWAL SYNDROME [None]
  - PARAESTHESIA [None]
  - SEDATION [None]
  - DECREASED APPETITE [None]
  - MALAISE [None]
  - WRONG TECHNIQUE IN DRUG USAGE PROCESS [None]
